FAERS Safety Report 5010905-9 (Version None)
Quarter: 2006Q2

REPORT INFORMATION
  Report Type: 
  Country: None (occurrence: None)
  Receive Date: 20060523
  Receipt Date: 20060512
  Transmission Date: 20061013
  Serious: Yes (Other)
  Sender: FDA-Public Use
  Company Number: 2005BH00640

PATIENT
  Age: 44 Year
  Sex: Female

DRUGS (4)
  1. ATIVAN [Suspect]
  2. BUPROPION [Suspect]
  3. PEG-INTRON [Concomitant]
  4. REBETOL [Concomitant]

REACTIONS (4)
  - DRUG WITHDRAWAL SYNDROME [None]
  - FEELING ABNORMAL [None]
  - HALLUCINATION, VISUAL [None]
  - TREATMENT NONCOMPLIANCE [None]
